FAERS Safety Report 8579521-6 (Version None)
Quarter: 2012Q3

REPORT INFORMATION
  Report Type: 
  Country: None (occurrence: None)
  Receive Date: 20120808
  Receipt Date: 20120706
  Transmission Date: 20120928
  Serious: Yes (Hospitalization)
  Sender: FDA-Public Use
  Company Number: GB-GLAXOSMITHKLINE-Z0016082B

PATIENT
  Sex: Male
  Weight: 83 kg

DRUGS (3)
  1. CHLORAMBUCIL [Suspect]
     Indication: CHRONIC LYMPHOCYTIC LEUKAEMIA
     Route: 048
     Dates: start: 20110305
  2. OFATUMUMAB [Suspect]
     Indication: CHRONIC LYMPHOCYTIC LEUKAEMIA
     Dosage: 2G WEEKLY
     Route: 042
     Dates: start: 20120705
  3. BISOPROLOL FUMARATE [Concomitant]
     Indication: EXTRASYSTOLES
     Dosage: 2.5MG PER DAY
     Route: 048
     Dates: start: 20120707

REACTIONS (1)
  - EXTRASYSTOLES [None]
